FAERS Safety Report 5494938-4 (Version None)
Quarter: 2007Q4

REPORT INFORMATION
  Report Type: 
  Country: None (occurrence: None)
  Receive Date: 20071024
  Receipt Date: 20071022
  Transmission Date: 20080405
  Serious: Yes (Hospitalization)
  Sender: FDA-Public Use
  Company Number: A0688964A

PATIENT
  Age: 59 Year
  Sex: Male

DRUGS (7)
  1. COREG [Suspect]
     Indication: HYPERTENSION
     Dosage: 50MG TWICE PER DAY
     Route: 048
     Dates: start: 20061001, end: 20071017
  2. SPORANOX [Concomitant]
  3. GABAPENTIN [Concomitant]
  4. PLAVIX [Concomitant]
  5. CRESTOR [Concomitant]
  6. UNSPECIFIED MEDICATION [Concomitant]
  7. MICARDIS [Concomitant]
     Dosage: 80MG UNKNOWN

REACTIONS (6)
  - COUGH [None]
  - DYSPNOEA [None]
  - PULMONARY HYPERTENSION [None]
  - PULMONARY OEDEMA [None]
  - SYNCOPE [None]
  - TINNITUS [None]
